FAERS Safety Report 23503922 (Version 2)
Quarter: 2024Q1

REPORT INFORMATION
  Report Type: Report from Study
  Country: GR (occurrence: GR)
  Receive Date: 20240209
  Receipt Date: 20240220
  Transmission Date: 20240410
  Serious: Yes (Other)
  Sender: FDA-Public Use
  Company Number: GR-UCBSA-2024005783

PATIENT
  Age: 48 Year
  Sex: Male
  Weight: 107 kg

DRUGS (1)
  1. BIMEKIZUMAB [Suspect]
     Active Substance: BIMEKIZUMAB
     Indication: Psoriasis
     Dosage: 320 MILLIGRAM, EV 4 WEEKS
     Route: 058
     Dates: start: 20231115, end: 20240131

REACTIONS (2)
  - Oesophageal candidiasis [Recovering/Resolving]
  - Oropharyngeal candidiasis [Recovering/Resolving]

NARRATIVE: CASE EVENT DATE: 20240118
